FAERS Safety Report 25312827 (Version 3)
Quarter: 2025Q2

REPORT INFORMATION
  Report Type: Spontaneous
  Country: US (occurrence: US)
  Receive Date: 20250514
  Receipt Date: 20250604
  Transmission Date: 20250717
  Serious: No
  Sender: PFIZER
  Company Number: US-PFIZER INC-202500098400

PATIENT
  Age: 84 Year
  Sex: Male
  Weight: 95.5 kg

DRUGS (9)
  1. HEPARIN SODIUM [Suspect]
     Active Substance: HEPARIN SODIUM
     Indication: Anticoagulant therapy
     Route: 042
     Dates: start: 20250423, end: 20250423
  2. ASPIRIN [Concomitant]
     Active Substance: ASPIRIN
     Indication: Antiplatelet therapy
     Dosage: 81 MG, DAILY
  3. ATORVASTATIN [Concomitant]
     Active Substance: ATORVASTATIN
     Indication: Blood cholesterol abnormal
  4. CALCIUM ACETATE [Concomitant]
     Active Substance: CALCIUM ACETATE
  5. VITAMIN D3 [Concomitant]
     Active Substance: CHOLECALCIFEROL
  6. CENTRUM SILVER [ASCORBIC ACID;BETACAROTENE;BIOTIN;CALCIUM PHOSPHATE;CH [Concomitant]
  7. INSULIN GLARGINE [Concomitant]
     Active Substance: INSULIN GLARGINE
     Indication: Blood pressure abnormal
  8. MIDODRINE [Concomitant]
     Active Substance: MIDODRINE
  9. VELPHORO [Concomitant]
     Active Substance: SUCROFERRIC OXYHYDROXIDE

REACTIONS (1)
  - Drug effect less than expected [Unknown]

NARRATIVE: CASE EVENT DATE: 20250423
